FAERS Safety Report 21653467 (Version 1)
Quarter: 2022Q4

REPORT INFORMATION
  Report Type: Spontaneous
  Country: NO (occurrence: NO)
  Receive Date: 20221128
  Receipt Date: 20221128
  Transmission Date: 20230113
  Serious: Yes (Other)
  Sender: FDA-Public Use
  Company Number: NO-ROCHE-3221094

PATIENT
  Sex: Female

DRUGS (13)
  1. PREDNISOLONE [Suspect]
     Active Substance: PREDNISOLONE
     Indication: Diffuse large B-cell lymphoma
     Route: 065
  2. POLATUZUMAB VEDOTIN [Suspect]
     Active Substance: POLATUZUMAB VEDOTIN
     Indication: Diffuse large B-cell lymphoma
     Dosage: ON 08/JUL/2022, SHE RECEIVED MOST RECENT DOSE OF POLATUZUMAB VEDOTIN.
     Route: 065
     Dates: start: 20220407
  3. IFOSFAMIDE [Suspect]
     Active Substance: IFOSFAMIDE
     Indication: Diffuse large B-cell lymphoma
     Dosage: ON 30/JUL/2018, SHE RECEIVED MOST RECENT DOSE OF IFOSFAMIDE.
     Route: 065
     Dates: start: 20180401
  4. BENDAMUSTINE [Suspect]
     Active Substance: BENDAMUSTINE
     Indication: Diffuse large B-cell lymphoma
     Dosage: ON 08/JUL/2022, SHE RECEIVED MOST RECENT DOSE OF BENDAMUSTINE.
     Route: 065
     Dates: start: 20220407
  5. BENDAMUSTINE [Suspect]
     Active Substance: BENDAMUSTINE
     Dosage: ON 01/FEB/2021, SHE RECEIVED MOST RECENT DOSE OF BENDAMUSTINE.
     Dates: start: 20200909
  6. TROFOSFAMIDE [Suspect]
     Active Substance: TROFOSFAMIDE
     Indication: Diffuse large B-cell lymphoma
     Dosage: ON 06/APR/2022, SHE RECEIVED MOST RECENT DOSE OF TROFOSFAMIDE.
     Route: 065
     Dates: start: 20210504
  7. VINCRISTINE [Suspect]
     Active Substance: VINCRISTINE
     Indication: Diffuse large B-cell lymphoma
     Route: 065
  8. RITUXIMAB [Suspect]
     Active Substance: RITUXIMAB
     Indication: Diffuse large B-cell lymphoma
     Dosage: 08/JUL/2022, SHE RECEIVED MOST RECENT DOSE OF RITUXIMAB.
     Route: 065
     Dates: start: 20220407
  9. RITUXIMAB [Suspect]
     Active Substance: RITUXIMAB
     Dosage: ON 30/JUL/2018, SHE RECEIVED MOST RECENT DOSE OF RITUXIMAB.
     Dates: start: 20180401
  10. RITUXIMAB [Suspect]
     Active Substance: RITUXIMAB
     Dosage: 01/FEB/2021, SHE RECEIVED MOST RECENT DOSE OF RITUXIMAB.
     Dates: start: 20200909
  11. DOXORUBICIN [Suspect]
     Active Substance: DOXORUBICIN
     Indication: Diffuse large B-cell lymphoma
     Route: 065
  12. CYCLOPHOSPHAMIDE [Suspect]
     Active Substance: CYCLOPHOSPHAMIDE
     Indication: Diffuse large B-cell lymphoma
     Route: 065
  13. ETOPOSIDE [Suspect]
     Active Substance: ETOPOSIDE
     Indication: Diffuse large B-cell lymphoma
     Dosage: ON 30/JUL/2018, SHE RECEIVED MOST RECENT DOSE OF ETOPOSIDE.
     Route: 065
     Dates: start: 20180401

REACTIONS (2)
  - Metastatic lymphoma [Unknown]
  - Disease progression [Unknown]
